FAERS Safety Report 21387709 (Version 1)
Quarter: 2022Q3

REPORT INFORMATION
  Report Type: Spontaneous
  Country: BR (occurrence: BR)
  Receive Date: 20220928
  Receipt Date: 20220928
  Transmission Date: 20221027
  Serious: Yes (Other)
  Sender: FDA-Public Use
  Company Number: BR-ORGANON-O2207BRA001788

PATIENT
  Sex: Female
  Weight: 72 kg

DRUGS (4)
  1. ETONOGESTREL [Suspect]
     Active Substance: ETONOGESTREL
     Indication: Contraception
     Dosage: 1 IMPLANT
     Route: 059
     Dates: start: 20220513
  2. ETONOGESTREL [Suspect]
     Active Substance: ETONOGESTREL
     Indication: Abdominal pain
  3. ETONOGESTREL [Suspect]
     Active Substance: ETONOGESTREL
     Indication: Menstrual cycle management
  4. DULOXETINE [Concomitant]
     Active Substance: DULOXETINE
     Indication: Anxiety
     Dosage: UNK
     Dates: start: 202110

REACTIONS (9)
  - Immunodeficiency [Unknown]
  - Vulvovaginal dryness [Unknown]
  - Bacterial vaginosis [Unknown]
  - Nasopharyngitis [Unknown]
  - Discomfort [Unknown]
  - Headache [Unknown]
  - Drug ineffective for unapproved indication [Unknown]
  - Product use in unapproved indication [Unknown]
  - Product prescribing issue [Unknown]

NARRATIVE: CASE EVENT DATE: 20220101
